FAERS Safety Report 10083765 (Version 1)
Quarter: 2014Q2

REPORT INFORMATION
  Report Type: Spontaneous
  Country: US (occurrence: None)
  Receive Date: 20140416
  Receipt Date: 20140416
  Transmission Date: 20141212
  Serious: Yes (Hospitalization)
  Sender: FDA-Public Use
  Company Number: None

PATIENT
  Age: 3 Year
  Sex: Male
  Weight: 15.33 kg

DRUGS (2)
  1. METHOTREXATE [Suspect]
     Dosage: IV MTX (ESCALATING DOSE)?
     Route: 042
  2. VINCRISTINE SULFATE [Suspect]

REACTIONS (18)
  - Abdominal pain [None]
  - Nausea [None]
  - Vomiting [None]
  - Ileus [None]
  - Impaired gastric emptying [None]
  - Tachycardia [None]
  - Tachypnoea [None]
  - Hypoxia [None]
  - Face oedema [None]
  - Pyrexia [None]
  - Ascites [None]
  - Pleural effusion [None]
  - Nephropathy [None]
  - Clostridium test positive [None]
  - Sepsis [None]
  - Disseminated intravascular coagulation [None]
  - Enterocolitis infectious [None]
  - Capillary leak syndrome [None]
